FAERS Safety Report 5082725-0 (Version None)
Quarter: 2006Q3

REPORT INFORMATION
  Report Type: 
  Country: None (occurrence: None)
  Receive Date: 20060816
  Receipt Date: 20060816
  Transmission Date: 20061208
  Serious: Yes (Other)
  Sender: FDA-Public Use
  Company Number: None

PATIENT
  Age: 50 Year
  Sex: Male
  Weight: 63 kg

DRUGS (3)
  1. CASPOFUNGIN 50 MG MERCK [Suspect]
     Indication: ASPERGILLOSIS
     Dosage: 50 MG DAILY IV DRIP
     Route: 041
     Dates: start: 20060801, end: 20060814
  2. CASPOFUNGIN 50 MG MERCK [Suspect]
     Indication: BRONCHITIS
     Dosage: 50 MG DAILY IV DRIP
     Route: 041
     Dates: start: 20060801, end: 20060814
  3. GENTAMICIN [Suspect]
     Indication: LUNG INFECTION PSEUDOMONAL
     Dosage: 150 MG EVERY 48 HOURS IV DRIP
     Route: 041

REACTIONS (2)
  - FLUSHING [None]
  - INFUSION RELATED REACTION [None]
